FAERS Safety Report 6537852-5 (Version None)
Quarter: 2010Q1

REPORT INFORMATION
  Report Type: 
  Country: None (occurrence: None)
  Receive Date: 20100114
  Receipt Date: 20100106
  Transmission Date: 20100710
  Serious: Yes (Other)
  Sender: FDA-Public Use
  Company Number: NZ-JNJFOC-20100102184

PATIENT
  Sex: Male

DRUGS (5)
  1. REMICADE [Suspect]
     Indication: DRUG USE FOR UNKNOWN INDICATION
     Route: 042
     Dates: start: 20090219, end: 20090427
  2. RIFINAH [Suspect]
     Indication: DRUG USE FOR UNKNOWN INDICATION
     Route: 048
  3. PYRAZINAMIDE [Concomitant]
     Route: 048
     Dates: start: 20090508, end: 20090701
  4. ETHAMBUTOL HYDROCHLORIDE [Concomitant]
     Route: 048
     Dates: start: 20090508, end: 20090701
  5. PYRIDOXINE [Concomitant]
     Route: 048
     Dates: start: 20090508

REACTIONS (3)
  - LYMPHADENOPATHY [None]
  - PYREXIA [None]
  - TUBERCULOSIS [None]
